FAERS Safety Report 24273907 (Version 1)
Quarter: 2024Q3

REPORT INFORMATION
  Report Type: Spontaneous
  Country: US (occurrence: US)
  Receive Date: 20240902
  Receipt Date: 20240902
  Transmission Date: 20241017
  Serious: No
  Sender: ASTELLAS
  Company Number: US-ASTELLAS-2024US006613

PATIENT
  Age: 68 Year
  Sex: Male

DRUGS (2)
  1. PADCEV [Suspect]
     Active Substance: ENFORTUMAB VEDOTIN-EJFV
     Indication: Bladder cancer
     Dosage: 125 MG, CYCLIC (DAYS 1, 8, AND 15 EVERY 28 DAYS)
     Route: 042
     Dates: start: 20230615, end: 20240111
  2. PADCEV [Suspect]
     Active Substance: ENFORTUMAB VEDOTIN-EJFV
     Dosage: 125 MG, CYCLIC (DAYS 1, 15 OF EVERY 28 DAYS)
     Route: 042
     Dates: start: 20240125

REACTIONS (2)
  - Product temperature excursion issue [Unknown]
  - Intercepted product storage error [Unknown]
